FAERS Safety Report 21773756 (Version 1)
Quarter: 2022Q4

REPORT INFORMATION
  Report Type: Spontaneous
  Country: US (occurrence: None)
  Receive Date: 20221222
  Receipt Date: 20221222
  Transmission Date: 20230113
  Serious: No
  Sender: FDA-Public Use
  Company Number: None

PATIENT
  Sex: Female
  Weight: 72.12 kg

DRUGS (8)
  1. CAPECITABINE [Suspect]
     Active Substance: CAPECITABINE
     Indication: Breast cancer female
     Dosage: OTHER FREQUENCY : DAYS 1-14/OFF 7;?
     Route: 048
  2. KLOR CON 10 [Concomitant]
  3. ONDANSETRON HYDROCHLORIDE [Concomitant]
     Active Substance: ONDANSETRON HYDROCHLORIDE
  4. ACETAMINOPHEN [Concomitant]
     Active Substance: ACETAMINOPHEN
  5. PEPCID AC [Concomitant]
     Active Substance: FAMOTIDINE
  6. HERCEPTIN [Concomitant]
     Active Substance: TRASTUZUMAB
  7. MAGNESIUM [Concomitant]
     Active Substance: MAGNESIUM
  8. LIPITOR [Concomitant]
     Active Substance: ATORVASTATIN CALCIUM

REACTIONS (2)
  - Cardiac disorder [None]
  - Therapy interrupted [None]
